FAERS Safety Report 24173967 (Version 1)
Quarter: 2024Q3

REPORT INFORMATION
  Report Type: Spontaneous
  Country: DE (occurrence: DE)
  Receive Date: 20240805
  Receipt Date: 20240805
  Transmission Date: 20241016
  Serious: Yes (Other)
  Sender: ACCORD
  Company Number: None

PATIENT
  Age: 74 Year
  Sex: Female
  Weight: 89 kg

DRUGS (1)
  1. SPIRONOLACTONE [Suspect]
     Active Substance: SPIRONOLACTONE
     Indication: Hypertension
     Dosage: STRENGTH: 50MG, 1 TABLET DAILY
     Dates: start: 20240408, end: 2024

REACTIONS (3)
  - Nausea [Not Recovered/Not Resolved]
  - Oesophageal pain [Not Recovered/Not Resolved]
  - Breast cancer female [Not Recovered/Not Resolved]

NARRATIVE: CASE EVENT DATE: 20240627
